FAERS Safety Report 13976332 (Version 1)
Quarter: 2017Q3

REPORT INFORMATION
  Report Type: Spontaneous
  Country: IT (occurrence: IT)
  Receive Date: 20170915
  Receipt Date: 20170915
  Transmission Date: 20171128
  Serious: Yes (Hospitalization)
  Sender: FDA-Public Use
  Company Number: IT-SUN PHARMACEUTICAL INDUSTRIES LTD-2017RR-149758

PATIENT
  Age: 69 Year
  Sex: Female

DRUGS (8)
  1. PAROXETINE. [Concomitant]
     Active Substance: PAROXETINE
     Indication: PRODUCT USED FOR UNKNOWN INDICATION
     Dosage: 40 MG
     Route: 065
  2. OLANZAPINE. [Concomitant]
     Active Substance: OLANZAPINE
     Indication: PRODUCT USED FOR UNKNOWN INDICATION
     Route: 065
  3. OMEPRAZOLE. [Concomitant]
     Active Substance: OMEPRAZOLE
     Indication: PRODUCT USED FOR UNKNOWN INDICATION
     Dosage: 40 MG
     Route: 065
  4. TRITTICO 50 MG [Concomitant]
     Active Substance: TRAZODONE HYDROCHLORIDE
     Indication: PRODUCT USED FOR UNKNOWN INDICATION
     Dosage: 1 DF
     Route: 065
  5. FRONTAL 0,50MG [Interacting]
     Active Substance: ALPRAZOLAM
     Indication: DEPRESSION
     Dosage: 3 DF DAILY
     Route: 065
     Dates: start: 20161018, end: 20161214
  6. LENDORMIN 0.25 MG [Interacting]
     Active Substance: BROTIZOLAM
     Indication: DEPRESSION
     Dosage: 1 DF DAILY
     Route: 065
     Dates: start: 20161103, end: 20161214
  7. FULCRO 200 MG [Concomitant]
     Indication: PRODUCT USED FOR UNKNOWN INDICATION
     Route: 065
  8. ALPRAZOLAM. [Suspect]
     Active Substance: ALPRAZOLAM
     Indication: DEPRESSION
     Dosage: 15 GTT DAILY
     Route: 065
     Dates: start: 20161103, end: 20161214

REACTIONS (2)
  - Hypokinesia [Recovered/Resolved]
  - Bradyphrenia [Recovered/Resolved]

NARRATIVE: CASE EVENT DATE: 20161214
